FAERS Safety Report 8849342 (Version 3)
Quarter: 2012Q4

REPORT INFORMATION
  Report Type: Report from Study
  Country: JP (occurrence: JP)
  Receive Date: 20121017
  Receipt Date: 20121231
  Transmission Date: 20130627
  Serious: Yes (Other)
  Sender: FDA-Public Use
  Company Number: JP-VERTEX PHARMACEUTICAL INC.-2012-022956

PATIENT
  Age: 40 Year
  Sex: Male

DRUGS (16)
  1. VX-950 (TELAPREVIR) [Suspect]
     Indication: CHRONIC HEPATITIS C
     Dosage: 2250 mg, qd
     Route: 048
     Dates: start: 20120403, end: 20120619
  2. VX-950 (TELAPREVIR) [Suspect]
     Dosage: UNK
     Route: 048
     Dates: start: 20120620, end: 20120703
  3. RIBAVIRIN [Suspect]
     Indication: CHRONIC HEPATITIS C
     Dosage: 1000 mg, qd
     Route: 048
     Dates: start: 20120403, end: 20120619
  4. RIBAVIRIN [Suspect]
     Dosage: 800 mg, qd
     Route: 048
     Dates: start: 20120620, end: 20120626
  5. RIBAVIRIN [Suspect]
     Dosage: 400 mg, qd
     Route: 048
     Dates: start: 20120627, end: 20120703
  6. RIBAVIRIN [Suspect]
     Dosage: 400 mg, qd
     Dates: start: 20120808, end: 20120814
  7. RIBAVIRIN [Suspect]
     Dosage: 800 mg, qd
     Route: 048
     Dates: start: 20120815, end: 20120828
  8. RIBAVIRIN [Suspect]
     Dosage: 1000 mg, qd
     Route: 048
     Dates: start: 20120829, end: 20121002
  9. PEGINTERFERON ALFA-2B [Suspect]
     Indication: CHRONIC HEPATITIS C
     Dosage: 1.5 ?g/kg, weekly
     Route: 058
     Dates: start: 20120403, end: 20120926
  10. CONTOMIN [Concomitant]
     Dosage: 37.5 mg, qd
     Route: 048
  11. SERENACE [Concomitant]
     Dosage: 4.5 mg, qd
     Route: 048
  12. AKINETON                           /00079501/ [Concomitant]
     Dosage: 3 mg, qd
     Route: 048
  13. BENZALIN [Concomitant]
     Dosage: 5 mg, qd
     Route: 048
  14. DIOVAN [Concomitant]
     Dosage: 40 mg, qd
     Route: 048
  15. ALEROFF [Concomitant]
     Dosage: 10 mg, qd
     Route: 048
  16. REBAMIPIDE [Concomitant]
     Dosage: UNK, prn
     Route: 048
     Dates: start: 20120403, end: 20120417

REACTIONS (1)
  - White blood cell count decreased [Recovered/Resolved]
